FAERS Safety Report 4836810-6 (Version None)
Quarter: 2005Q4

REPORT INFORMATION
  Report Type: 
  Country: None (occurrence: None)
  Receive Date: 20051123
  Receipt Date: 20050829
  Transmission Date: 20060501
  Serious: Yes (Hospitalization)
  Sender: FDA-Public Use
  Company Number: US-MERCK-0508USA04962

PATIENT
  Age: 59 Year
  Sex: Female
  Weight: 49 kg

DRUGS (8)
  1. VIOXX [Suspect]
     Indication: ARTHRITIS
     Route: 048
     Dates: start: 20000101, end: 20040829
  2. VIOXX [Suspect]
     Indication: ARTHRALGIA
     Route: 048
     Dates: start: 20000101, end: 20040829
  3. ATIVAN [Concomitant]
     Indication: NERVOUSNESS
     Route: 065
     Dates: start: 19870101
  4. ATIVAN [Concomitant]
     Indication: ANXIETY
     Route: 065
     Dates: start: 19870101
  5. EFFEXOR [Concomitant]
     Indication: DEPRESSION
     Route: 065
     Dates: start: 19960101
  6. PREMARIN [Concomitant]
     Indication: HORMONE REPLACEMENT THERAPY
     Route: 065
     Dates: start: 19770101, end: 20030701
  7. WELLBUTRIN [Concomitant]
     Route: 065
  8. PAXIL [Concomitant]
     Route: 065

REACTIONS (19)
  - ARTHRALGIA [None]
  - BLOOD CHOLESTEROL INCREASED [None]
  - BRONCHITIS [None]
  - CEREBROVASCULAR ACCIDENT [None]
  - CORONARY ARTERY DISEASE [None]
  - CORONARY ARTERY OCCLUSION [None]
  - DIARRHOEA [None]
  - DYSURIA [None]
  - EJECTION FRACTION DECREASED [None]
  - FALL [None]
  - HYPERTENSION [None]
  - INJURY [None]
  - LABYRINTHITIS [None]
  - MYOCARDIAL INFARCTION [None]
  - PNEUMONIA [None]
  - RENAL DISORDER [None]
  - RIB FRACTURE [None]
  - SINUS CONGESTION [None]
  - VENTRICULAR TACHYCARDIA [None]
